FAERS Safety Report 18646376 (Version 1)
Quarter: 2020Q4

REPORT INFORMATION
  Report Type: Spontaneous
  Country: FR (occurrence: FR)
  Receive Date: 20201222
  Receipt Date: 20201222
  Transmission Date: 20210114
  Serious: Yes (Life-Threatening, Other)
  Sender: FDA-Public Use
  Company Number: FR-AUROBINDO-AUR-APL-2020-061831

PATIENT
  Age: 58 Year
  Sex: Male
  Weight: 94 kg

DRUGS (4)
  1. FLUOROURACILE [Suspect]
     Active Substance: FLUOROURACIL
     Indication: CHEMOTHERAPY
     Dosage: 800 MILLIGRAM, CYCLICAL
     Route: 042
     Dates: start: 20201030, end: 20201030
  2. OXALIPLATIN. [Suspect]
     Active Substance: OXALIPLATIN
     Indication: CHEMOTHERAPY
     Dosage: 170 MILLIGRAM, CYCLICAL
     Route: 042
     Dates: start: 20201030
  3. FOLINATE DE CALCIUM [Suspect]
     Active Substance: LEUCOVORIN CALCIUM
     Indication: CHEMOTHERAPY
     Dosage: 800 MILLIGRAM, ONCE A DAY
     Route: 042
     Dates: start: 20201030
  4. FLUOROURACILE [Suspect]
     Active Substance: FLUOROURACIL
     Dosage: 4800 MILLIGRAM, CYCLICAL
     Route: 042
     Dates: start: 20201030

REACTIONS (1)
  - Pneumatosis intestinalis [Not Recovered/Not Resolved]

NARRATIVE: CASE EVENT DATE: 20201124
